FAERS Safety Report 6815123-7 (Version None)
Quarter: 2010Q3

REPORT INFORMATION
  Report Type: 
  Country: None (occurrence: None)
  Receive Date: 20100702
  Receipt Date: 20100621
  Transmission Date: 20110219
  Serious: Yes (Other)
  Sender: FDA-Public Use
  Company Number: PHHY2010US29176

PATIENT
  Sex: Female

DRUGS (7)
  1. EXTAVIA [Suspect]
     Indication: MULTIPLE SCLEROSIS
     Dosage: 0.25 MG, QOD
     Route: 058
     Dates: start: 20100322
  2. MULTI-VITAMIN [Concomitant]
     Dosage: 1 DF, QD
  3. PREMARIN [Concomitant]
     Dosage: 625 MG, QD
  4. TERBINAFINE HCL [Concomitant]
     Dosage: 250 MG X 7 PILLS EVERY MONTH
  5. AMBIEN [Concomitant]
     Dosage: 10 MG, PRN
  6. SERAX [Concomitant]
     Dosage: 10 MG, PRN
  7. ALEVE (CAPLET) [Concomitant]
     Indication: PAIN
     Dosage: 500 MG, PRN

REACTIONS (10)
  - DRUG DOSE OMISSION [None]
  - INJECTION SITE HAEMATOMA [None]
  - INJECTION SITE PAIN [None]
  - ORAL DISORDER [None]
  - OVERDOSE [None]
  - PAIN [None]
  - PARAESTHESIA ORAL [None]
  - PRURITUS [None]
  - SPEECH DISORDER [None]
  - URTICARIA [None]
